FAERS Safety Report 8175262-8 (Version None)
Quarter: 2012Q1

REPORT INFORMATION
  Report Type: 
  Country: None (occurrence: None)
  Receive Date: 20120229
  Receipt Date: 20120222
  Transmission Date: 20120608
  Serious: Yes (Death, Hospitalization, Other)
  Sender: FDA-Public Use
  Company Number: US-PFIZER INC-2011317169

PATIENT
  Sex: Male

DRUGS (8)
  1. RAPAMUNE [Interacting]
     Indication: GRAFT VERSUS HOST DISEASE
  2. VORICONAZOLE [Interacting]
     Indication: ANTIFUNGAL PROPHYLAXIS
  3. VORICONAZOLE [Interacting]
  4. VORICONAZOLE [Interacting]
     Indication: STEM CELL TRANSPLANT
     Dosage: 50MG 2 TABS AM, 2 TABS PM
     Route: 048
     Dates: start: 20110910, end: 20111118
  5. VORICONAZOLE [Interacting]
     Dosage: 100-200MG, TWICE A DAY
     Route: 042
     Dates: start: 20110910, end: 20111118
  6. RAPAMUNE [Suspect]
     Indication: STEM CELL TRANSPLANT
     Dosage: VARIABLE (PER DRUG LEVELS), UNK
     Route: 048
     Dates: start: 20110908, end: 20111013
  7. MICAFUNGIN [Concomitant]
     Dosage: UNK
     Route: 042
     Dates: start: 20111118
  8. TACROLIMUS [Concomitant]
     Dosage: UNK
     Dates: start: 20110101

REACTIONS (5)
  - RESPIRATORY FAILURE [None]
  - CARDIAC ARREST [None]
  - DRUG INTERACTION [None]
  - LIVER DISORDER [None]
  - IMMUNOSUPPRESSANT DRUG LEVEL INCREASED [None]
